FAERS Safety Report 6399333-1 (Version None)
Quarter: 2009Q4

REPORT INFORMATION
  Report Type: 
  Country: None (occurrence: None)
  Receive Date: 20091014
  Receipt Date: 20070926
  Transmission Date: 20100525
  Serious: Yes (Hospitalization, Other)
  Sender: FDA-Public Use
  Company Number: US-ASTRAZENECA-2006UW26058

PATIENT
  Age: 10010 Day
  Sex: Male
  Weight: 93 kg

DRUGS (15)
  1. SEROQUEL [Suspect]
     Indication: ANXIETY
     Route: 048
     Dates: start: 20020809, end: 20060701
  2. SEROQUEL [Suspect]
     Indication: DEPRESSION
     Route: 048
     Dates: start: 20020809, end: 20060701
  3. SEROQUEL [Suspect]
     Indication: OBSESSIVE-COMPULSIVE DISORDER
     Route: 048
     Dates: start: 20020809, end: 20060701
  4. SEROQUEL [Suspect]
     Dosage: 100-800 MG
     Route: 048
     Dates: start: 20030609
  5. SEROQUEL [Suspect]
     Dosage: 100-800 MG
     Route: 048
     Dates: start: 20030609
  6. SEROQUEL [Suspect]
     Dosage: 100-800 MG
     Route: 048
     Dates: start: 20030609
  7. PRILOSEC OTC [Concomitant]
     Route: 048
     Dates: start: 20051216
  8. NEURONTIN [Concomitant]
     Dosage: 300-2400 MG
     Route: 048
     Dates: start: 20040123
  9. PROTONIX [Concomitant]
     Indication: ABDOMINAL PAIN
     Route: 048
     Dates: start: 20021219
  10. THIAMINE HCL [Concomitant]
     Route: 048
     Dates: start: 20030111
  11. DILAUDID [Concomitant]
     Indication: PAIN
     Dates: start: 20021219
  12. XANAX [Concomitant]
     Route: 048
     Dates: start: 20040123
  13. LOPRESSOR [Concomitant]
     Indication: HYPERTENSION
     Route: 048
     Dates: start: 20000814
  14. FOLIC ACID [Concomitant]
     Route: 048
     Dates: start: 20030111
  15. KLONOPIN [Concomitant]
     Dosage: 0.5 MG, 4 MG TAKEN AT LEAST BID AND UPTO QID MAXIMUM
     Route: 048
     Dates: start: 20051216

REACTIONS (7)
  - ALCOHOLIC PANCREATITIS [None]
  - BLOOD GLUCOSE INCREASED [None]
  - DIABETES MELLITUS [None]
  - GLUCOSE TOLERANCE IMPAIRED [None]
  - PANCREATITIS [None]
  - PANCREATITIS CHRONIC [None]
  - TYPE 2 DIABETES MELLITUS [None]
